FAERS Safety Report 6929142-3 (Version None)
Quarter: 2010Q3

REPORT INFORMATION
  Report Type: 
  Country: None (occurrence: None)
  Receive Date: 20100817
  Receipt Date: 20100813
  Transmission Date: 20110219
  Serious: Yes (Hospitalization)
  Sender: FDA-Public Use
  Company Number: FR-MERCK-1008FRA00043

PATIENT
  Age: 72 Year
  Sex: Male

DRUGS (5)
  1. PRIMAXIN [Suspect]
     Indication: LUNG DISORDER
     Route: 041
     Dates: start: 20100406
  2. AZACITIDINE [Suspect]
     Indication: ACUTE MYELOID LEUKAEMIA
     Route: 058
     Dates: start: 20100322, end: 20100330
  3. CEFTRIAXONE SODIUM [Suspect]
     Indication: LUNG DISORDER
     Route: 065
     Dates: start: 20100403, end: 20100405
  4. CIPROFLOXACIN HYDROCHLORIDE [Suspect]
     Indication: LUNG DISORDER
     Route: 065
     Dates: start: 20100403, end: 20100405
  5. AMIKACIN SULFATE [Suspect]
     Indication: LUNG DISORDER
     Route: 042
     Dates: start: 20100406

REACTIONS (10)
  - ANAEMIA [None]
  - BLOOD ALKALINE PHOSPHATASE INCREASED [None]
  - BLOOD BILIRUBIN INCREASED [None]
  - COUGH [None]
  - FEBRILE BONE MARROW APLASIA [None]
  - FLANK PAIN [None]
  - GAMMA-GLUTAMYLTRANSFERASE INCREASED [None]
  - GENERAL PHYSICAL HEALTH DETERIORATION [None]
  - LUNG DISORDER [None]
  - PANCREATITIS ACUTE [None]
